FAERS Safety Report 17152404 (Version 1)
Quarter: 2019Q4

REPORT INFORMATION
  Report Type: Spontaneous
  Country: US (occurrence: US)
  Receive Date: 20191213
  Receipt Date: 20191213
  Transmission Date: 20200122
  Serious: No
  Sender: FDA-Public Use
  Company Number: US-JNJFOC-20191211976

PATIENT
  Sex: Female

DRUGS (2)
  1. ORTHO NOVUM 1/35 [Suspect]
     Active Substance: ETHINYL ESTRADIOL\NORETHINDRONE
     Indication: HORMONE LEVEL ABNORMAL
  2. ORTHO NOVUM 1/35 [Suspect]
     Active Substance: ETHINYL ESTRADIOL\NORETHINDRONE
     Indication: MIGRAINE
     Route: 065

REACTIONS (3)
  - Product availability issue [Unknown]
  - Product use in unapproved indication [Unknown]
  - Off label use [Unknown]
